APPROVED DRUG PRODUCT: OCUFEN
Active Ingredient: FLURBIPROFEN SODIUM
Strength: 0.03% **Federal Register determination that product was not discontinued or withdrawn for safety or effectiveness reasons**
Dosage Form/Route: SOLUTION/DROPS;OPHTHALMIC
Application: N019404 | Product #001
Applicant: ALLERGAN PHARMACEUTICAL
Approved: Dec 31, 1986 | RLD: Yes | RS: No | Type: DISCN